FAERS Safety Report 9453173 (Version 2)
Quarter: 2013Q4

REPORT INFORMATION
  Report Type: Spontaneous
  Country: US (occurrence: US)
  Receive Date: 20130812
  Receipt Date: 20131205
  Transmission Date: 20140711
  Serious: Yes (Hospitalization)
  Sender: FDA-Public Use
  Company Number: US-FRI-1000047491

PATIENT
  Age: 34 Year
  Sex: Female
  Weight: 99.3 kg

DRUGS (24)
  1. VIIBRYD [Suspect]
     Indication: DEPRESSION
     Dosage: 10 MG
     Route: 048
     Dates: start: 20130308, end: 20130314
  2. VIIBRYD [Suspect]
     Dosage: 20 MG
     Route: 048
     Dates: start: 20130315, end: 20130321
  3. VIIBRYD [Suspect]
     Indication: DEPRESSION
     Dosage: 40 MG
     Route: 048
     Dates: start: 20130322, end: 20130407
  4. PROZAC [Suspect]
     Indication: DEPRESSION
     Dosage: 90 MG ONCE WEEKLY
     Dates: start: 20130411, end: 20130429
  5. PROZAC [Suspect]
     Indication: MIGRAINE
     Dosage: 10 MG
     Dates: start: 20130430, end: 20130516
  6. PROZAC [Suspect]
     Indication: DEPRESSION
     Dosage: 90 MG ONCE WEEKLY
     Dates: start: 20130517, end: 20130520
  7. PROZAC [Suspect]
     Indication: MIGRAINE
     Dosage: 10 MG
     Dates: start: 20130521, end: 20130701
  8. PROZAC [Suspect]
     Indication: DEPRESSION
     Dosage: 90 MG ONCE WEEKLY
     Dates: start: 20130702, end: 20130708
  9. PROZAC [Suspect]
     Indication: MIGRAINE
     Dosage: 10 MG
     Dates: start: 20130709, end: 2013
  10. PROZAC [Suspect]
     Dosage: 5 MG
     Route: 048
     Dates: start: 2013, end: 201309
  11. TRANXENE [Concomitant]
     Indication: DEPRESSION
     Dates: start: 201303, end: 20130407
  12. METFORMIN [Concomitant]
     Indication: GLUCOSE TOLERANCE IMPAIRED
     Dosage: 1000 MG
  13. VITAMIN D [Concomitant]
     Indication: VITAMIN D DEFICIENCY
     Dosage: 50,000 IU ONCE WEEKLY
  14. AZITHROMYCIN [Concomitant]
     Indication: ACUTE SINUSITIS
     Dosage: 2 TABLETS ON DAY 1 THEN 1 TABLET DAILY FOR 4 DAYS
     Route: 048
     Dates: start: 20130308, end: 201303
  15. AZITHROMYCIN [Concomitant]
     Indication: PHARYNGITIS
  16. DEXAMETHASONE [Concomitant]
     Indication: ACUTE SINUSITIS
     Dosage: 1 ML
     Route: 030
     Dates: start: 20130308, end: 20130308
  17. DEXAMETHASONE [Concomitant]
     Indication: PHARYNGITIS
  18. METHYLPREDNISOLONE [Concomitant]
     Indication: ACUTE SINUSITIS
     Dosage: 1 ML
     Route: 030
     Dates: start: 20130308, end: 20130308
  19. METHYLPREDNISOLONE [Concomitant]
     Indication: PHARYNGITIS
  20. LEVOCETIRIZINE [Concomitant]
     Indication: ACUTE SINUSITIS
     Dosage: 5 MG QHS
  21. LEVOCETIRIZINE [Concomitant]
     Indication: PHARYNGITIS
  22. FLUCONAZOLE [Concomitant]
     Indication: VULVOVAGINITIS
     Dosage: 200 MG QOD
     Route: 048
  23. VALACYCLOVIR [Concomitant]
     Dosage: 2 TABLETS TWICE DAILY FOR 1 DAY AT FIRST SIGN OF ONSET
     Route: 048
  24. PHENTERMINE [Concomitant]
     Dosage: 1/2-1 PILL EVERY MORNING BEFORE BREAKFAST

REACTIONS (29)
  - Epilepsy [Not Recovered/Not Resolved]
  - Convulsion [Not Recovered/Not Resolved]
  - Migraine [Recovered/Resolved]
  - Muscle spasms [Recovered/Resolved]
  - Hallucinations, mixed [Recovered/Resolved]
  - Amnesia [Recovering/Resolving]
  - Coordination abnormal [Unknown]
  - Fall [Unknown]
  - Laceration [Unknown]
  - Contusion [Unknown]
  - Insomnia [Recovering/Resolving]
  - Dysphemia [Recovered/Resolved]
  - Malaise [Unknown]
  - Paraesthesia [Unknown]
  - Dysphonia [Unknown]
  - Muscular weakness [Unknown]
  - Hypoaesthesia [Unknown]
  - Rash [Unknown]
  - Onychoclasis [Unknown]
  - Alopecia [Unknown]
  - Disturbance in attention [Unknown]
  - Nervousness [Unknown]
  - Syncope [Unknown]
  - Dizziness [Recovered/Resolved]
  - Somnambulism [Unknown]
  - Gait disturbance [Recovered/Resolved]
  - Communication disorder [Recovered/Resolved]
  - Musculoskeletal pain [Not Recovered/Not Resolved]
  - Off label use [Recovered/Resolved]
